FAERS Safety Report 5951854-9 (Version None)
Quarter: 2008Q4

REPORT INFORMATION
  Report Type: 
  Country: None (occurrence: None)
  Receive Date: 20081113
  Receipt Date: 20081105
  Transmission Date: 20090506
  Serious: Yes (Hospitalization, Other)
  Sender: FDA-Public Use
  Company Number: US-AMGEN-QUU317678

PATIENT
  Sex: Male

DRUGS (3)
  1. ARANESP [Suspect]
     Indication: DRUG USE FOR UNKNOWN INDICATION
     Dates: start: 20060101
  2. EPOGEN [Suspect]
     Indication: ANAEMIA
     Route: 065
  3. INFLUENZA VACCINE [Concomitant]

REACTIONS (5)
  - CORONARY ARTERY BYPASS [None]
  - HEART VALVE REPLACEMENT [None]
  - INJECTION SITE HAEMATOMA [None]
  - INJECTION SITE INDURATION [None]
  - VASCULAR OPERATION [None]
